FAERS Safety Report 6707105-0 (Version None)
Quarter: 2010Q2

REPORT INFORMATION
  Report Type: 
  Country: None (occurrence: None)
  Receive Date: 20100503
  Receipt Date: 20100428
  Transmission Date: 20101027
  Serious: Yes (Other)
  Sender: FDA-Public Use
  Company Number: A0857093A

PATIENT
  Age: 48 Year
  Sex: Male

DRUGS (5)
  1. AVANDIA [Suspect]
     Indication: TYPE 2 DIABETES MELLITUS
     Dosage: 8MG PER DAY
     Route: 048
     Dates: start: 20040706, end: 20060125
  2. METFORMIN [Concomitant]
  3. INSULIN [Concomitant]
  4. MEDICATION FOR HIGH BLOOD PRESSURE [Concomitant]
  5. LIPITOR [Concomitant]

REACTIONS (2)
  - CARDIAC OPERATION [None]
  - MYOCARDIAL INFARCTION [None]
